FAERS Safety Report 12762227 (Version 2)
Quarter: 2016Q4

REPORT INFORMATION
  Report Type: Spontaneous
  Country: FR (occurrence: FR)
  Receive Date: 20160920
  Receipt Date: 20161011
  Transmission Date: 20170207
  Serious: Yes (Hospitalization)
  Sender: FDA-Public Use
  Company Number: FR-ROCHE-1831266

PATIENT
  Age: 37 Year
  Sex: Female

DRUGS (16)
  1. VALIUM [Suspect]
     Active Substance: DIAZEPAM
     Dosage: DOSAGE OF DIAZEPAM INCREASED
     Route: 048
     Dates: start: 20160630, end: 20160725
  2. TIAPRIDAL [Suspect]
     Active Substance: TIAPRIDE HYDROCHLORIDE
     Dosage: 1000 MG/DAY WITH 250 MG WHEN NEEDED
     Route: 048
     Dates: start: 20160630
  3. TIAPRIDAL [Suspect]
     Active Substance: TIAPRIDE HYDROCHLORIDE
     Dosage: DOSE DECREASE AT 150MG/DAY
     Route: 048
     Dates: start: 20160816, end: 20160816
  4. TIAPRIDAL [Suspect]
     Active Substance: TIAPRIDE HYDROCHLORIDE
     Dosage: 1250 MG/DAY WITH 250 MG WHEN NEEDED
     Route: 048
     Dates: start: 20160701
  5. VALIUM [Suspect]
     Active Substance: DIAZEPAM
     Dosage: INCREASED THE DOSAGE OF DIAZEPAM
     Route: 048
     Dates: start: 20160628
  6. TIAPRIDAL [Suspect]
     Active Substance: TIAPRIDE HYDROCHLORIDE
     Dosage: THE DOSAGE OF TIAPRIDE HYDROCHLORIDE ORAL SOLUTION WAS INCREASED
     Route: 048
     Dates: start: 20160628
  7. TIAPRIDAL [Suspect]
     Active Substance: TIAPRIDE HYDROCHLORIDE
     Dosage: (375 MG IN THE MORNING, 375 MG AT LUNCHTIME, 750 MG IN THE EVENING) WITH 250 MG WHEN NEEDED
     Route: 048
     Dates: start: 20160712
  8. LOXAPAC [Suspect]
     Active Substance: LOXAPINE SUCCINATE
     Indication: PRODUCT USED FOR UNKNOWN INDICATION
     Dosage: 50 MG/2 ML INJECTABLE SOLUTION WHEN NEEDED
     Route: 030
     Dates: end: 20160701
  9. TIAPRIDAL [Suspect]
     Active Substance: TIAPRIDE HYDROCHLORIDE
     Dosage: DOSE DECREASE DECREASE AT 500 MG/DAY WITH 200 MG WHEN NEEDED
     Route: 048
     Dates: start: 20160725
  10. TIAPRIDAL [Suspect]
     Active Substance: TIAPRIDE HYDROCHLORIDE
     Dosage: DOSE DECREASE AT 300 MG/DAY WITH 200 MG WHEN NEEDED
     Route: 048
     Dates: start: 20160726
  11. THERALENE (FRANCE) [Suspect]
     Active Substance: TRIMEPRAZINE
     Indication: PRODUCT USED FOR UNKNOWN INDICATION
     Dosage: 4 %
     Route: 048
     Dates: end: 20160725
  12. VALIUM [Suspect]
     Active Substance: DIAZEPAM
     Indication: PRODUCT USED FOR UNKNOWN INDICATION
     Route: 048
  13. TIAPRIDAL [Suspect]
     Active Substance: TIAPRIDE HYDROCHLORIDE
     Indication: ANXIETY
     Dosage: TIAPRIDAL 5 MG/DROP
     Route: 048
     Dates: start: 20160622, end: 20160819
  14. IMOVANE [Suspect]
     Active Substance: ZOPICLONE
     Indication: PRODUCT USED FOR UNKNOWN INDICATION
     Dosage: 7.5 MG
     Route: 048
     Dates: end: 20160725
  15. LOXAPAC [Suspect]
     Active Substance: LOXAPINE SUCCINATE
     Indication: PRODUCT USED FOR UNKNOWN INDICATION
     Dosage: WHEN NEEDED
     Route: 048
     Dates: start: 20160703, end: 20160725
  16. LEPTICUR [Suspect]
     Active Substance: TROPATEPINE HYDROCHLORIDE
     Indication: PRODUCT USED FOR UNKNOWN INDICATION
     Route: 048
     Dates: end: 20160725

REACTIONS (7)
  - Fall [Unknown]
  - Overdose [Unknown]
  - Sinus tachycardia [Recovered/Resolved]
  - Sedation [Recovered/Resolved]
  - Balance disorder [Recovered/Resolved]
  - Incorrect dose administered [Unknown]
  - Pyrexia [Recovered/Resolved]

NARRATIVE: CASE EVENT DATE: 20160701
